FAERS Safety Report 5519247-6 (Version None)
Quarter: 2007Q4

REPORT INFORMATION
  Report Type: 
  Country: None (occurrence: None)
  Receive Date: 20071116
  Receipt Date: 20071107
  Transmission Date: 20080405
  Serious: Yes (Hospitalization, Other)
  Sender: FDA-Public Use
  Company Number: US-AMGEN-QUU247067

PATIENT
  Sex: Female
  Weight: 64 kg

DRUGS (6)
  1. ENBREL [Suspect]
     Indication: JUVENILE ARTHRITIS
     Route: 058
     Dates: start: 20040218, end: 20070901
  2. ARAVA [Concomitant]
  3. TOLECTIN [Concomitant]
  4. VIOXX [Concomitant]
  5. PREDNISONE TAB [Concomitant]
  6. ZANTAC [Concomitant]

REACTIONS (20)
  - ACTIVITIES OF DAILY LIVING IMPAIRED [None]
  - ANAEMIA [None]
  - CATARACT [None]
  - DEHYDRATION [None]
  - DELAYED PUBERTY [None]
  - FACIAL PALSY [None]
  - FAILURE TO THRIVE [None]
  - FOOT FRACTURE [None]
  - IRIDOCYCLITIS [None]
  - MALNUTRITION [None]
  - METABOLIC ACIDOSIS [None]
  - MIGRAINE [None]
  - NUCLEAR MAGNETIC RESONANCE IMAGING BRAIN ABNORMAL [None]
  - OSTEOPOROSIS [None]
  - PYREXIA [None]
  - RENAL FAILURE ACUTE [None]
  - RENAL FAILURE CHRONIC [None]
  - RHEUMATOID ARTHRITIS [None]
  - VOMITING [None]
  - WEIGHT DECREASED [None]
